FAERS Safety Report 5503676-0 (Version None)
Quarter: 2007Q4

REPORT INFORMATION
  Report Type: 
  Country: None (occurrence: None)
  Receive Date: 20071101
  Receipt Date: 20071022
  Transmission Date: 20080405
  Serious: Yes (Hospitalization)
  Sender: FDA-Public Use
  Company Number: PHHO2007DE16649

PATIENT
  Age: 64 Year
  Sex: Male

DRUGS (3)
  1. ZOLEDRONIC ACID [Suspect]
     Indication: METASTASES TO BONE
     Dosage: 4 MG, EVERY 3-4 WEEKS
     Route: 042
     Dates: start: 20070926
  2. CALCIUM [Concomitant]
  3. VITAMIN D [Concomitant]

REACTIONS (2)
  - PHLEBITIS [None]
  - PYREXIA [None]
